FAERS Safety Report 6840489-1 (Version None)
Quarter: 2010Q3

REPORT INFORMATION
  Report Type: 
  Country: None (occurrence: None)
  Receive Date: 20100714
  Receipt Date: 20100707
  Transmission Date: 20110219
  Serious: Yes (Other)
  Sender: FDA-Public Use
  Company Number: A0858979A

PATIENT
  Age: 78 Year
  Sex: Female
  Weight: 63.6 kg

DRUGS (4)
  1. AVANDIA [Suspect]
     Route: 065
     Dates: start: 20050101
  2. METFORMIN HCL [Concomitant]
  3. GLYBURIDE [Concomitant]
  4. THYROID TAB [Concomitant]
     Dates: start: 20050101

REACTIONS (3)
  - FOOT FRACTURE [None]
  - FRACTURE [None]
  - UPPER LIMB FRACTURE [None]
